FAERS Safety Report 5404522-6 (Version None)
Quarter: 2007Q3

REPORT INFORMATION
  Report Type: 
  Country: None (occurrence: None)
  Receive Date: 20070713
  Receipt Date: 20070501
  Transmission Date: 20080115
  Serious: Yes (Hospitalization)
  Sender: FDA-Public Use
  Company Number: US-JNJFOC-20070101751

PATIENT
  Age: 39 Year
  Sex: Female
  Weight: 67.586 kg

DRUGS (8)
  1. ORTHO EVRA [Suspect]
     Indication: CONTRACEPTION
     Dosage: TRANSDERMAL
     Route: 062
     Dates: start: 20040101, end: 20050201
  2. GLUCOPHAGE (METFOMRIN HYDROCHLORIDE) [Concomitant]
  3. GLIPIZIDE [Concomitant]
  4. ALUMINUM/MAGNESIUM/SIMETHICONE (SIMECO) [Concomitant]
  5. VASOTEC [Concomitant]
  6. ASPIRIN [Concomitant]
  7. MULTIVITAMIN [Concomitant]
  8. RANITIDINE [Concomitant]

REACTIONS (1)
  - MYOCARDIAL INFARCTION [None]
